FAERS Safety Report 22178186 (Version 1)
Quarter: 2023Q2

REPORT INFORMATION
  Report Type: Spontaneous
  Country: CN (occurrence: None)
  Receive Date: 20230405
  Receipt Date: 20230405
  Transmission Date: 20230722
  Serious: Yes (Death, Hospitalization)
  Sender: FDA-Public Use
  Company Number: 2023A078141

PATIENT
  Age: 52 Year
  Sex: Male

DRUGS (2)
  1. OLAPARIB [Suspect]
     Active Substance: OLAPARIB
     Indication: Gallbladder cancer
     Dosage: 300 MG TWICE DAILY WAS GIVEN ORALLY
     Route: 048
  2. AFATINIB [Concomitant]
     Active Substance: AFATINIB

REACTIONS (11)
  - Intestinal obstruction [Fatal]
  - Cachexia [Fatal]
  - Multiple organ dysfunction syndrome [Fatal]
  - Acquired gene mutation [Fatal]
  - Drug resistance [Fatal]
  - Malignant neoplasm progression [Fatal]
  - Anaemia [Unknown]
  - Nausea [Unknown]
  - Diarrhoea [Unknown]
  - Off label use [Unknown]
  - Drug ineffective [Unknown]
